FAERS Safety Report 13068248 (Version 1)
Quarter: 2016Q4

REPORT INFORMATION
  Report Type: Report from Study
  Country: US (occurrence: US)
  Receive Date: 20161228
  Receipt Date: 20161228
  Transmission Date: 20170207
  Serious: Yes (Other)
  Sender: FDA-Public Use
  Company Number: US-JNJFOC-20161217972

PATIENT
  Age: 72 Year
  Sex: Male

DRUGS (9)
  1. ACYCLOVIR. [Concomitant]
     Active Substance: ACYCLOVIR
  2. ASCORBIC ACID. [Concomitant]
     Active Substance: ASCORBIC ACID
  3. IMBRUVICA [Suspect]
     Active Substance: IBRUTINIB
     Indication: CHRONIC LYMPHOCYTIC LEUKAEMIA
     Route: 048
     Dates: start: 20161208, end: 201612
  4. ALLOPURINOL. [Concomitant]
     Active Substance: ALLOPURINOL
  5. NEXIUM [Concomitant]
     Active Substance: ESOMEPRAZOLE MAGNESIUM
  6. IMBRUVICA [Suspect]
     Active Substance: IBRUTINIB
     Indication: CHRONIC LYMPHOCYTIC LEUKAEMIA
     Route: 048
     Dates: start: 20161211
  7. METFORMIN [Concomitant]
     Active Substance: METFORMIN HYDROCHLORIDE
  8. MESNA. [Concomitant]
     Active Substance: MESNA
  9. OXYCODONE [Concomitant]
     Active Substance: OXYCODONE

REACTIONS (4)
  - Off label use [Not Recovered/Not Resolved]
  - Diarrhoea [Not Recovered/Not Resolved]
  - Gastrointestinal haemorrhage [Unknown]
  - Inappropriate schedule of drug administration [Not Recovered/Not Resolved]

NARRATIVE: CASE EVENT DATE: 201612
